FAERS Safety Report 13914933 (Version 1)
Quarter: 2017Q3

REPORT INFORMATION
  Report Type: Spontaneous
  Country: US (occurrence: US)
  Receive Date: 20170828
  Receipt Date: 20170828
  Transmission Date: 20171127
  Serious: Yes (Disabling, Other)
  Sender: FDA-Public Use
  Company Number: None

PATIENT
  Age: 50 Year
  Sex: Female
  Weight: 55.8 kg

DRUGS (12)
  1. VALIUM [Concomitant]
     Active Substance: DIAZEPAM
  2. ACIDOPHILUS [Concomitant]
     Active Substance: LACTOBACILLUS ACIDOPHILUS
  3. DAILY VITAMINS [Concomitant]
  4. MAGNESIUM [Concomitant]
     Active Substance: MAGNESIUM
  5. GINGER. [Concomitant]
     Active Substance: GINGER
  6. RIZATRIPTAN. [Concomitant]
     Active Substance: RIZATRIPTAN
  7. METRONIDAZOLE 500 MG TABLET; FLAGYL [Suspect]
     Active Substance: METRONIDAZOLE
     Indication: CLOSTRIDIUM DIFFICILE INFECTION
     Dosage: ?          QUANTITY:1 TABLET(S);?
     Route: 048
     Dates: start: 20170816
  8. LEXAPRO [Concomitant]
     Active Substance: ESCITALOPRAM OXALATE
  9. IBUPROFEN. [Concomitant]
     Active Substance: IBUPROFEN
  10. ONDANSETRON [Concomitant]
     Active Substance: ONDANSETRON
  11. OXYCODONE [Concomitant]
     Active Substance: OXYCODONE
  12. DRAMAMINE [Concomitant]
     Active Substance: DIMENHYDRINATE

REACTIONS (15)
  - Dehydration [None]
  - Pain [None]
  - Headache [None]
  - Diarrhoea [None]
  - Dysgeusia [None]
  - Fluid intake reduced [None]
  - Weight decreased [None]
  - Altered state of consciousness [None]
  - Nausea [None]
  - Nightmare [None]
  - Feeling abnormal [None]
  - Abdominal pain upper [None]
  - Chest discomfort [None]
  - Tremor [None]
  - Hypophagia [None]

NARRATIVE: CASE EVENT DATE: 20170826
